FAERS Safety Report 25322109 (Version 2)
Quarter: 2025Q3

REPORT INFORMATION
  Report Type: Spontaneous
  Country: US (occurrence: US)
  Receive Date: 20250516
  Receipt Date: 20250810
  Transmission Date: 20251021
  Serious: Yes (Other)
  Sender: ALEXION PHARMACEUTICALS
  Company Number: US-AstraZeneca-CH-00869219AP

PATIENT
  Sex: Female

DRUGS (1)
  1. BREZTRI [Suspect]
     Active Substance: BUDESONIDE\FORMOTEROL\GLYCOPYRROLATE
     Indication: Chronic obstructive pulmonary disease

REACTIONS (6)
  - Device delivery system issue [Unknown]
  - Product storage error [Unknown]
  - Off label use [Unknown]
  - Product dose omission issue [Unknown]
  - Lung neoplasm malignant [Unknown]
  - Pneumonitis [Unknown]
